FAERS Safety Report 18523250 (Version 5)
Quarter: 2020Q4

REPORT INFORMATION
  Report Type: Spontaneous
  Country: US (occurrence: US)
  Receive Date: 20201119
  Receipt Date: 20201228
  Transmission Date: 20210114
  Serious: Yes (Other)
  Sender: FDA-Public Use
  Company Number: US-PFIZER INC-2020455736

PATIENT
  Age: 83 Year
  Sex: Female

DRUGS (3)
  1. IBRANCE [Suspect]
     Active Substance: PALBOCICLIB
     Dosage: 100 MG
     Dates: start: 20201111
  2. TRAMADOL. [Interacting]
     Active Substance: TRAMADOL
     Dosage: UNK
  3. IBRANCE [Interacting]
     Active Substance: PALBOCICLIB
     Dosage: 100 MG
     Dates: start: 20201101

REACTIONS (6)
  - Peripheral swelling [Unknown]
  - Respiratory depression [Unknown]
  - Nausea [Recovered/Resolved]
  - Drug interaction [Unknown]
  - Fatigue [Unknown]
  - Vomiting [Recovered/Resolved]

NARRATIVE: CASE EVENT DATE: 202011
